FAERS Safety Report 7837245-4 (Version None)
Quarter: 2011Q4

REPORT INFORMATION
  Report Type: 
  Country: None (occurrence: None)
  Receive Date: 20111024
  Receipt Date: 20111014
  Transmission Date: 20120403
  Serious: Yes (Other)
  Sender: FDA-Public Use
  Company Number: BR-ASTRAZENECA-2011SE62687

PATIENT
  Age: 56 Year
  Sex: Male

DRUGS (2)
  1. ATACAND HCT [Suspect]
     Dosage: 8/12.5 MG WITH UNKNOWN FREQUENCY
     Route: 048
  2. ATACAND HCT [Suspect]
     Dosage: 16/12.5 MG WITH UNKNOWN FREQUENCY
     Route: 048

REACTIONS (2)
  - BLOOD PRESSURE FLUCTUATION [None]
  - RETINAL DETACHMENT [None]
